FAERS Safety Report 24074787 (Version 1)
Quarter: 2024Q3

REPORT INFORMATION
  Report Type: Other
  Country: QA (occurrence: QA)
  Receive Date: 20240710
  Receipt Date: 20240710
  Transmission Date: 20241016
  Serious: Yes (Hospitalization, Other)
  Sender: INNOGENIX
  Company Number: QA-Innogenix, LLC-2159005

PATIENT
  Age: 30 Year
  Sex: Female

DRUGS (1)
  1. METRONIDAZOLE [Suspect]
     Active Substance: METRONIDAZOLE
     Indication: Gastroenteritis
     Route: 042

REACTIONS (2)
  - Optic neuritis [Recovering/Resolving]
  - Blindness [Recovering/Resolving]
